FAERS Safety Report 14312694 (Version 1)
Quarter: 2017Q4

REPORT INFORMATION
  Report Type: Spontaneous
  Country: US (occurrence: US)
  Receive Date: 20171220
  Receipt Date: 20171220
  Transmission Date: 20180321
  Serious: Yes (Hospitalization)
  Sender: FDA-Public Use
  Company Number: None

PATIENT
  Age: 76 Year
  Sex: Male
  Weight: 73.48 kg

DRUGS (1)
  1. ALLOPURINOL. [Suspect]
     Active Substance: ALLOPURINOL
     Indication: GOUT
     Dosage: 1 TAB AM PO
     Route: 048
     Dates: start: 20170710, end: 20170810

REACTIONS (6)
  - Oral mucosal blistering [None]
  - Rash [None]
  - Toxic epidermal necrolysis [None]
  - Oropharyngeal blistering [None]
  - Pyrexia [None]
  - Dysphagia [None]

NARRATIVE: CASE EVENT DATE: 20170813
